FAERS Safety Report 4622979-5 (Version None)
Quarter: 2005Q1

REPORT INFORMATION
  Report Type: 
  Country: None (occurrence: None)
  Receive Date: 20050329
  Receipt Date: 20050317
  Transmission Date: 20050727
  Serious: Yes (Life-Threatening)
  Sender: FDA-Public Use
  Company Number: 2005-126432-NL

PATIENT
  Age: 36 Year
  Sex: Female

DRUGS (4)
  1. DEXAMETHASONE [Suspect]
     Indication: PREGNANCY
     Dosage: 0.5 MG BID
     Route: 048
     Dates: start: 20040511, end: 20040818
  2. PROGESTERONE [Suspect]
     Indication: PREGNANCY
     Dosage: 400 MG BID
     Route: 067
     Dates: start: 20040511, end: 20040818
  3. ACETYL SALICYLIC ACID USP BAT [Concomitant]
  4. ENOXAPARIN SODIUM [Concomitant]

REACTIONS (2)
  - DRUG EXPOSURE DURING PREGNANCY [None]
  - POSTPARTUM HAEMORRHAGE [None]
